FAERS Safety Report 19942225 (Version 1)
Quarter: 2021Q4

REPORT INFORMATION
  Report Type: Spontaneous
  Country: CN (occurrence: CN)
  Receive Date: 20211011
  Receipt Date: 20211011
  Transmission Date: 20220303
  Serious: Yes (Hospitalization)
  Sender: FDA-Public Use
  Company Number: CN-BAYER-2021A227073

PATIENT
  Age: 60 Year
  Sex: Female
  Weight: 54 kg

DRUGS (1)
  1. GLUCOBAY [Suspect]
     Active Substance: ACARBOSE
     Indication: Diabetes mellitus
     Dosage: 0.1 G, TID
     Route: 048
     Dates: start: 20210726, end: 20210827

REACTIONS (4)
  - Pain in extremity [None]
  - Muscular weakness [None]
  - Alanine aminotransferase increased [Recovering/Resolving]
  - Aspartate aminotransferase increased [Recovering/Resolving]

NARRATIVE: CASE EVENT DATE: 20210101
